FAERS Safety Report 17205244 (Version 4)
Quarter: 2020Q1

REPORT INFORMATION
  Report Type: Spontaneous
  Country: JP (occurrence: JP)
  Receive Date: 20191227
  Receipt Date: 20200205
  Transmission Date: 20200409
  Serious: Yes (Other)
  Sender: FDA-Public Use
  Company Number: JP-ASTELLAS-2019JP029272

PATIENT
  Age: 32 Year
  Sex: Female

DRUGS (25)
  1. LEVOFLOXACIN HEMIHYDRATE [Concomitant]
     Active Substance: LEVOFLOXACIN
     Indication: PRODUCT USED FOR UNKNOWN INDICATION
     Dosage: 500 MG, ONCE DAILY, 30 MINUTES AFTER BREAKFAST
     Route: 065
     Dates: start: 20191212, end: 20200105
  2. RELUMINA [Concomitant]
     Active Substance: RELUGOLIX
     Indication: PRODUCT USED FOR UNKNOWN INDICATION
     Dosage: 40 MG, ONCE DAILY, 30 MINUTES BEFORE BREAKFAST
     Route: 065
     Dates: start: 20191210
  3. LUNESTA [Concomitant]
     Active Substance: ESZOPICLONE
     Indication: INSOMNIA
     Dosage: 2 MG, AS NEEDED, WHEN SLEEPLESSNESS
     Route: 048
     Dates: start: 20191210, end: 20191229
  4. LUNESTA [Concomitant]
     Active Substance: ESZOPICLONE
     Dosage: 2 MG, AS NEEDED, WHEN SLEEPLESSNESS
     Route: 048
     Dates: start: 20200108, end: 20200121
  5. LUNESTA [Concomitant]
     Active Substance: ESZOPICLONE
     Dosage: 2 MG, AS NEEDED, WHEN SLEEPLESSNESS
     Route: 048
     Dates: start: 20200124
  6. LOXOPROFEN NA [Concomitant]
     Active Substance: LOXOPROFEN SODIUM
     Indication: PAIN
     Dosage: 60 MG, ONCE DAILY, WHEN PAIN
     Route: 048
     Dates: start: 20191210, end: 20191217
  7. NAIXAN [NAPROXEN SODIUM] [Concomitant]
     Dosage: 100 MG, IN THE MORNING
     Route: 065
     Dates: start: 20191219, end: 20191219
  8. DAIPHEN [Concomitant]
     Active Substance: SULFAMETHOXAZOLE\TRIMETHOPRIM
     Indication: PRODUCT USED FOR UNKNOWN INDICATION
     Dosage: 0.5 TABLET, ONCE DAILY, 30 MINUTES AFTER BREAKFAST
     Route: 065
     Dates: start: 20191210
  9. MIRTAZAPINE. [Concomitant]
     Active Substance: MIRTAZAPINE
     Indication: PRODUCT USED FOR UNKNOWN INDICATION
     Dosage: 15 MG, ONCE DAILY, BEFORE SLEEP
     Route: 065
     Dates: start: 20191216, end: 20191218
  10. NAIXAN [NAPROXEN SODIUM] [Concomitant]
     Indication: PRODUCT USED FOR UNKNOWN INDICATION
     Dosage: 100 MG, THRICE DAILY, AFTER EVERY MEAL
     Route: 065
     Dates: start: 20191210, end: 20191217
  11. MIYA-BM [Concomitant]
     Active Substance: CLOSTRIDIUM BUTYRICUM SPORES STRAIN M-55
     Indication: PRODUCT USED FOR UNKNOWN INDICATION
     Dosage: 1 TABLET, THRICE DAILY, AFTER EVERY MEAL
     Route: 065
     Dates: start: 20191210, end: 20191225
  12. NEOSTELIN GREEN [Concomitant]
     Active Substance: BENZETHONIUM CHLORIDE
     Route: 065
     Dates: start: 20200107, end: 20200107
  13. PRIMPERAN [Concomitant]
     Active Substance: METOCLOPRAMIDE HYDROCHLORIDE
     Indication: NAUSEA
     Dosage: 1 TABLET, AS NEEDED, WHEN QUEASY
     Route: 048
     Dates: start: 20191214, end: 20191214
  14. NEOSTELIN GREEN [Concomitant]
     Active Substance: BENZETHONIUM CHLORIDE
     Indication: PRODUCT USED FOR UNKNOWN INDICATION
     Route: 065
     Dates: start: 20191214, end: 20191214
  15. NEOSTELIN GREEN [Concomitant]
     Active Substance: BENZETHONIUM CHLORIDE
     Route: 065
     Dates: start: 20191227, end: 20191227
  16. NEOSTELIN GREEN [Concomitant]
     Active Substance: BENZETHONIUM CHLORIDE
     Route: 065
     Dates: start: 20191231, end: 20191231
  17. BEPOTASTINE BESILATE OD [Concomitant]
     Indication: PRODUCT USED FOR UNKNOWN INDICATION
     Dosage: 10 MG, AS NEEDED, BEFORE PLATELET TRANSFUSION
     Route: 048
     Dates: start: 20191210, end: 20191223
  18. XOSPATA [Suspect]
     Active Substance: GILTERITINIB
     Indication: ACUTE MYELOID LEUKAEMIA
     Dosage: 120 MG, ONCE DAILY, 30 MINUTES AFTER DINNER
     Route: 048
     Dates: start: 20191213
  19. TAKECAB [Concomitant]
     Active Substance: VONOPRAZAN FUMURATE
     Indication: PRODUCT USED FOR UNKNOWN INDICATION
     Dosage: 10 MG, ONCE DAILY, 30 MINUTES AFTER BREAKFAST
     Route: 065
     Dates: start: 20191210
  20. FEBURIC [Concomitant]
     Active Substance: FEBUXOSTAT
     Indication: PRODUCT USED FOR UNKNOWN INDICATION
     Dosage: 40 MG, ONCE DAILY, 30 MINUTES AFTER BREAKFAST
     Route: 065
     Dates: start: 20191210
  21. MIRTAZAPINE. [Concomitant]
     Active Substance: MIRTAZAPINE
     Dosage: 15 MG, ONCE DAILY, 30 MINUTES AFTER DINNER
     Route: 065
     Dates: start: 20191219
  22. LORAZEPAM. [Concomitant]
     Active Substance: LORAZEPAM
     Indication: ANXIETY
     Dosage: 0.5 MG, AS NEEDED, WHEN ANXIETY
     Route: 048
     Dates: start: 20191216, end: 20191229
  23. CYMBALTA [Concomitant]
     Active Substance: DULOXETINE HYDROCHLORIDE
     Indication: PRODUCT USED FOR UNKNOWN INDICATION
     Dosage: 20 MG, ONCE DAILY, 30 MINUTES AFTER DINNER
     Route: 065
     Dates: start: 20191212, end: 20191212
  24. SEDIEL [Concomitant]
     Active Substance: TANDOSPIRONE
     Indication: PRODUCT USED FOR UNKNOWN INDICATION
     Dosage: 10 MG, THRICE DAILY, AFTER EVERY MEAL
     Route: 065
     Dates: start: 20191213, end: 20191216
  25. NEOSTELIN GREEN [Concomitant]
     Active Substance: BENZETHONIUM CHLORIDE
     Route: 065
     Dates: start: 20191222, end: 20191222

REACTIONS (3)
  - Ventricular extrasystoles [Recovered/Resolved]
  - Liver function test increased [Recovering/Resolving]
  - Tumour lysis syndrome [Recovered/Resolved]

NARRATIVE: CASE EVENT DATE: 20191216
